FAERS Safety Report 8166006-4 (Version None)
Quarter: 2012Q1

REPORT INFORMATION
  Report Type: 
  Country: None (occurrence: None)
  Receive Date: 20120227
  Receipt Date: 20110131
  Transmission Date: 20120608
  Serious: No
  Sender: FDA-Public Use
  Company Number: US-MYLANLABS-2011S1002262

PATIENT
  Age: 21 Year
  Sex: Female

DRUGS (2)
  1. AMNESTEEM [Suspect]
     Indication: ACNE
     Route: 048
     Dates: start: 20111101
  2. ANTI-ACNE PREPARATIONS FOR TOPICAL USE [Concomitant]
     Indication: ACNE
     Route: 061

REACTIONS (1)
  - KERATOSIS PILARIS [None]
